FAERS Safety Report 25373704 (Version 3)
Quarter: 2025Q4

REPORT INFORMATION
  Report Type: Report from Study
  Country: US (occurrence: US)
  Receive Date: 20250529
  Receipt Date: 20251015
  Transmission Date: 20260117
  Serious: Yes (Hospitalization, Other)
  Sender: ALEXION PHARMACEUTICALS
  Company Number: US-AstraZeneca-CH-00879567A

PATIENT
  Age: 16 Year
  Sex: Female
  Weight: 60.781 kg

DRUGS (2)
  1. SELUMETINIB [Suspect]
     Active Substance: SELUMETINIB
     Indication: Nervous system neoplasm benign
     Dosage: 40 MILLIGRAM, BID
     Dates: start: 20230706
  2. ZOLOFT [Concomitant]
     Active Substance: SERTRALINE HYDROCHLORIDE
     Dosage: 200 MILLIGRAM, QD
     Route: 065

REACTIONS (2)
  - Depression [Recovering/Resolving]
  - Major depression [Unknown]

NARRATIVE: CASE EVENT DATE: 20250301
